FAERS Safety Report 11080400 (Version 1)
Quarter: 2015Q2

REPORT INFORMATION
  Report Type: Spontaneous
  Country: AE (occurrence: AE)
  Receive Date: 20150430
  Receipt Date: 20150430
  Transmission Date: 20150821
  Serious: Yes (Other)
  Sender: FDA-Public Use
  Company Number: AE-ALLERGAN-1507829US

PATIENT
  Age: 40 Year
  Sex: Male

DRUGS (1)
  1. PREDNISOLONE UNK [Suspect]
     Active Substance: PREDNISOLONE
     Indication: OCULAR HYPERAEMIA
     Dosage: UNK
     Route: 047

REACTIONS (1)
  - Ophthalmic herpes simplex [Unknown]
